FAERS Safety Report 22205837 (Version 1)
Quarter: 2023Q2

REPORT INFORMATION
  Report Type: Spontaneous
  Country: PT (occurrence: PT)
  Receive Date: 20230413
  Receipt Date: 20230413
  Transmission Date: 20230722
  Serious: Yes (Death, Hospitalization, Other)
  Sender: FDA-Public Use
  Company Number: PT-ASTPRD-AER-2023-000880

PATIENT
  Age: 73 Year
  Sex: Male

DRUGS (7)
  1. PADCEV [Suspect]
     Active Substance: ENFORTUMAB VEDOTIN-EJFV
     Indication: Transitional cell carcinoma
     Dosage: 107.5 MG, CYCLIC (DAY 1 1ST CYCLE) ROUTE: IV INFUSION
     Route: 042
     Dates: start: 20221205
  2. PADCEV [Suspect]
     Active Substance: ENFORTUMAB VEDOTIN-EJFV
     Dosage: 107.5 MG, CYCLIC (DAY 8 1ST CYCLE): ROUTE: IV INFUSION
     Route: 042
     Dates: start: 20221212
  3. ONDANSETRON [Concomitant]
     Active Substance: ONDANSETRON
     Indication: Product used for unknown indication
     Dosage: UNK UNK, UNKNOWN FREQ.
     Route: 042
  4. METOCLOPRAMIDE [Concomitant]
     Active Substance: METOCLOPRAMIDE
     Indication: Nausea
     Dosage: 10 MG, ONCE DAILY (METOCLOPRAMIDE 10MG TABLETS (1 TABLET/DAY) ORAL THERAPY IN OUTPATIENT CLINIC, IND
     Route: 048
  5. AMLODIPINE\PERINDOPRIL [Concomitant]
     Active Substance: AMLODIPINE\PERINDOPRIL
     Indication: Hypertension
     Dosage: UNK UNK, UNKNOWN FREQ.
     Route: 065
  6. PANTOPRAZOLE SODIUM [Concomitant]
     Active Substance: PANTOPRAZOLE SODIUM
     Indication: Gastritis
     Route: 065
  7. MAGNESIUM ASPARTATE\POTASSIUM ASPARTATE [Concomitant]
     Active Substance: MAGNESIUM ASPARTATE\POTASSIUM ASPARTATE
     Indication: Muscle spasms
     Dosage: UNK UNK, UNKNOWN FREQ.
     Route: 065

REACTIONS (2)
  - Death [Fatal]
  - Stevens-Johnson syndrome [Unknown]

NARRATIVE: CASE EVENT DATE: 20221222
